FAERS Safety Report 23989719 (Version 1)
Quarter: 2024Q2

REPORT INFORMATION
  Report Type: Report from Study
  Country: CA (occurrence: CA)
  Receive Date: 20240619
  Receipt Date: 20240619
  Transmission Date: 20240715
  Serious: Yes (Other)
  Sender: FDA-Public Use
  Company Number: CA-BAYER-2024A088207

PATIENT
  Age: 74 Year
  Sex: Female

DRUGS (2)
  1. NAPROXEN [Suspect]
     Active Substance: NAPROXEN
     Indication: Psoriatic arthropathy
     Dosage: 2 DF, QD
     Route: 065
  2. OTEZLA [Suspect]
     Active Substance: APREMILAST
     Indication: Psoriasis
     Dosage: 2 DF, QD
     Route: 065

REACTIONS (6)
  - Psoriatic arthropathy [Unknown]
  - Renal failure [Unknown]
  - Therapeutic product effect decreased [Unknown]
  - Nausea [Unknown]
  - Muscle spasms [Unknown]
  - Blood test abnormal [Unknown]
